FAERS Safety Report 7448514-4 (Version None)
Quarter: 2011Q2

REPORT INFORMATION
  Report Type: 
  Country: None (occurrence: None)
  Receive Date: 20110429
  Receipt Date: 20101029
  Transmission Date: 20111010
  Serious: No
  Sender: FDA-Public Use
  Company Number: US-ASTRAZENECA-2010SE28736

PATIENT
  Sex: Female

DRUGS (2)
  1. TOPROL-XL [Suspect]
     Route: 048
  2. NEXIUM [Suspect]
     Route: 048

REACTIONS (8)
  - FALL [None]
  - LIMB INJURY [None]
  - TONGUE DISORDER [None]
  - MUSCULOSKELETAL CHEST PAIN [None]
  - SENSATION OF FOREIGN BODY [None]
  - POOR PERIPHERAL CIRCULATION [None]
  - WOUND [None]
  - BACK PAIN [None]
